FAERS Safety Report 20169343 (Version 1)
Quarter: 2021Q4

REPORT INFORMATION
  Report Type: Spontaneous
  Country: US (occurrence: None)
  Receive Date: 20211209
  Receipt Date: 20211209
  Transmission Date: 20220303
  Serious: Yes (Death)
  Sender: FDA-Public Use
  Company Number: None

PATIENT
  Age: 77 Year
  Sex: Male

DRUGS (10)
  1. DALFAMPRIDINE [Suspect]
     Active Substance: DALFAMPRIDINE
     Indication: Multiple sclerosis
     Dosage: FREQUENCY : TOTAL;?
     Route: 048
     Dates: start: 20181116
  2. ALEVE [Concomitant]
     Active Substance: NAPROXEN SODIUM
  3. ASPIRIN [Concomitant]
     Active Substance: ASPIRIN
  4. CYMBALTA [Concomitant]
     Active Substance: DULOXETINE HYDROCHLORIDE
  5. LIPITOR [Concomitant]
     Active Substance: ATORVASTATIN CALCIUM
  6. LYRICA [Concomitant]
     Active Substance: PREGABALIN
  7. MODAFINIL [Concomitant]
     Active Substance: MODAFINIL
  8. OXYBUTYNIN [Concomitant]
     Active Substance: OXYBUTYNIN
  9. REMERON [Concomitant]
     Active Substance: MIRTAZAPINE
  10. TRILEPTAL [Concomitant]
     Active Substance: OXCARBAZEPINE

REACTIONS (1)
  - Death [None]
